FAERS Safety Report 9107309 (Version 1)
Quarter: 2013Q1

REPORT INFORMATION
  Report Type: Spontaneous
  Country: US (occurrence: US)
  Receive Date: 20130221
  Receipt Date: 20130221
  Transmission Date: 20140127
  Serious: Yes (Other)
  Sender: FDA-Public Use
  Company Number: US-WATSON-2013-02838

PATIENT
  Sex: 0

DRUGS (4)
  1. PACLITAXEL [Suspect]
     Indication: NON-HODGKIN^S LYMPHOMA
     Dosage: UNK, UNKNOWN
     Route: 064
  2. PREDNISONE (UNKNOWN) [Suspect]
     Indication: NON-HODGKIN^S LYMPHOMA
     Dosage: UNK, UNKNOWN
     Route: 064
  3. DOXORUBICIN [Suspect]
     Indication: NON-HODGKIN^S LYMPHOMA
     Dosage: UNK, UNKNOWN
     Route: 064
  4. VINCRISTINE [Suspect]
     Indication: NON-HODGKIN^S LYMPHOMA
     Dosage: UNK, UNKNOWN
     Route: 064

REACTIONS (3)
  - Jaundice neonatal [Unknown]
  - Anaemia neonatal [Unknown]
  - Foetal exposure during pregnancy [Unknown]
